FAERS Safety Report 5956584-5 (Version None)
Quarter: 2008Q4

REPORT INFORMATION
  Report Type: 
  Country: None (occurrence: None)
  Receive Date: 20081103
  Receipt Date: 20080205
  Transmission Date: 20090506
  Serious: Yes (Hospitalization, Other)
  Sender: FDA-Public Use
  Company Number: DSA_31412_2008

PATIENT
  Sex: Male

DRUGS (3)
  1. LORAZEPAM [Suspect]
     Indication: AGITATION
     Dosage: (2 MG 1X ORAL)
     Route: 048
     Dates: start: 20070829, end: 20070829
  2. ZYPREXA [Suspect]
     Indication: AGITATION
     Dosage: (1 DF 1X, ABOUT 25 MG INTRAMUSCULAR)
     Route: 030
     Dates: start: 20070829, end: 20070829
  3. DIPHENHYDRAMINE HCL [Suspect]
     Indication: DRUG USE FOR UNKNOWN INDICATION
     Dosage: (1 DF 1X, DF)
     Dates: start: 20070829, end: 20070829

REACTIONS (6)
  - HYPOTENSION [None]
  - LOSS OF CONSCIOUSNESS [None]
  - OVERDOSE [None]
  - POTENTIATING DRUG INTERACTION [None]
  - RESPIRATORY DEPRESSION [None]
  - SLEEP APNOEA SYNDROME [None]
